FAERS Safety Report 8598674-7 (Version None)
Quarter: 2012Q3

REPORT INFORMATION
  Report Type: 
  Country: None (occurrence: None)
  Receive Date: 20120816
  Receipt Date: 20120808
  Transmission Date: 20120928
  Serious: Yes (Life-Threatening)
  Sender: FDA-Public Use
  Company Number: CH-TEVA-352928ISR

PATIENT
  Age: 90 Year
  Sex: Female

DRUGS (1)
  1. ZOLPIDEM [Suspect]
     Dosage: 5 MILLIGRAM DAILY;
     Route: 048
     Dates: start: 20120719, end: 20120719

REACTIONS (1)
  - COMA [None]
